FAERS Safety Report 14587245 (Version 1)
Quarter: 2018Q1

REPORT INFORMATION
  Report Type: Report from Study
  Country: None (occurrence: BE)
  Receive Date: 20180301
  Receipt Date: 20180301
  Transmission Date: 20180509
  Serious: Yes (Hospitalization)
  Sender: FDA-Public Use
  Company Number: BE-ABBVIE-18P-013-2268885-00

PATIENT
  Age: 55 Year
  Sex: Male
  Weight: 77 kg

DRUGS (11)
  1. PENTASA [Concomitant]
     Active Substance: MESALAMINE
     Indication: COLITIS ULCERATIVE
     Route: 048
     Dates: start: 20160719, end: 20171130
  2. BISOPROLOL [Concomitant]
     Active Substance: BISOPROLOL
     Indication: HYPERTENSION
     Route: 048
     Dates: start: 201711
  3. DEANXIT [Concomitant]
     Active Substance: FLUPENTIXOL DIHYDROCHLORIDE\MELITRACEN HYDROCHLORIDE
     Indication: DEPRESSION
     Route: 048
     Dates: start: 201509
  4. HUMIRA [Suspect]
     Active Substance: ADALIMUMAB
     Indication: COLITIS ULCERATIVE
     Route: 058
     Dates: start: 20160719, end: 20170117
  5. LEVOCETERIZINE [Concomitant]
     Indication: HYPERSENSITIVITY
     Route: 048
     Dates: start: 201703
  6. LEVOCETERIZINE [Concomitant]
     Indication: PROPHYLAXIS
  7. SERTRALINE [Concomitant]
     Active Substance: SERTRALINE HYDROCHLORIDE
     Indication: DEPRESSION
     Route: 048
     Dates: start: 201509
  8. VEDOLIZUMAB [Concomitant]
     Active Substance: VEDOLIZUMAB
     Indication: COLITIS ULCERATIVE
     Dosage: INDUCTION : WEEK 0-2-6 MAINTENANCE = 1/8WEEKS
     Route: 041
     Dates: start: 20170125
  9. PENTASA [Concomitant]
     Active Substance: MESALAMINE
     Dosage: INTERMITTENT 2-4 GRAMS/DAY
     Route: 048
     Dates: start: 20120127, end: 20160719
  10. CLOZAN [Concomitant]
     Indication: EMOTIONAL DISTRESS
     Route: 048
     Dates: start: 201703
  11. CLOZAN [Concomitant]
     Indication: PROPHYLAXIS

REACTIONS (2)
  - Tubulointerstitial nephritis [Not Recovered/Not Resolved]
  - Biopsy kidney [Recovered/Resolved]

NARRATIVE: CASE EVENT DATE: 20171220
